FAERS Safety Report 6334875-6 (Version None)
Quarter: 2009Q3

REPORT INFORMATION
  Report Type: 
  Country: None (occurrence: None)
  Receive Date: 20090831
  Receipt Date: 20090826
  Transmission Date: 20100115
  Serious: Yes (Hospitalization)
  Sender: FDA-Public Use
  Company Number: DE-AVENTIS-200912181DE

PATIENT
  Age: 63 Year
  Sex: Female

DRUGS (9)
  1. TAXOTERE [Suspect]
     Route: 041
     Dates: start: 20090722, end: 20090722
  2. FLUOROURACIL [Suspect]
     Route: 041
     Dates: start: 20090722, end: 20090722
  3. FOLINIC ACID [Suspect]
     Route: 041
     Dates: start: 20090722, end: 20090722
  4. OXALIPLATIN [Suspect]
     Route: 041
     Dates: start: 20090722, end: 20090722
  5. KEVATRIL [Concomitant]
     Indication: DRUG USE FOR UNKNOWN INDICATION
     Dosage: DOSE: NOT REPORTED
     Route: 042
  6. KEVATRIL [Concomitant]
     Dosage: DOSE: NOT REPORTED
     Route: 048
  7. FORTECORTIN                        /00016001/ [Concomitant]
     Indication: DRUG USE FOR UNKNOWN INDICATION
     Route: 042
  8. FORTECORTIN                        /00016001/ [Concomitant]
     Route: 048
  9. EMEND [Concomitant]
     Indication: DRUG USE FOR UNKNOWN INDICATION
     Dosage: DOSE: NOT REPORTED
     Route: 048

REACTIONS (6)
  - ASTHENIA [None]
  - DIARRHOEA [None]
  - DYSURIA [None]
  - FEBRILE NEUTROPENIA [None]
  - LEUKOPENIA [None]
  - VOMITING [None]
